FAERS Safety Report 7191861-4 (Version None)
Quarter: 2010Q4

REPORT INFORMATION
  Report Type: 
  Country: None (occurrence: None)
  Receive Date: 20101223
  Receipt Date: 20101211
  Transmission Date: 20110411
  Serious: Yes (Hospitalization)
  Sender: FDA-Public Use
  Company Number: PHHY2010ZA84710

PATIENT
  Age: 70 Year
  Sex: Female

DRUGS (6)
  1. ACLASTA [Suspect]
     Dosage: 5 MG
     Dates: start: 20090101
  2. PROTOS (STRONTIUM RANELATE) [Concomitant]
  3. LEVOTHYROXINE SODIUM [Concomitant]
  4. RAVAMIL - SLOW RELEASE [Concomitant]
  5. CALTRATE PLUS [Concomitant]
  6. ALLERGY TABLETS [Concomitant]

REACTIONS (3)
  - BONE DENSITY DECREASED [None]
  - SPINAL FRACTURE [None]
  - SURGERY [None]
